FAERS Safety Report 7277133-8 (Version None)
Quarter: 2011Q1

REPORT INFORMATION
  Report Type: 
  Country: None (occurrence: None)
  Receive Date: 20110202
  Receipt Date: 20110202
  Transmission Date: 20110831
  Serious: Yes (Other)
  Sender: FDA-Public Use
  Company Number: None

PATIENT
  Sex: Male
  Weight: 77.1115 kg

DRUGS (9)
  1. PREVACID [Suspect]
     Indication: GASTROOESOPHAGEAL REFLUX DISEASE
     Dosage: 40MG BID PO
     Route: 048
     Dates: start: 20070601, end: 20080101
  2. PREVACID [Suspect]
     Indication: NAUSEA
     Dosage: 40MG BID PO
     Route: 048
     Dates: start: 20070601, end: 20080101
  3. MELOXICAM [Concomitant]
  4. ZANTAC 150 [Suspect]
     Indication: GASTROOESOPHAGEAL REFLUX DISEASE
     Dosage: 150 MG BID P.O.
     Route: 048
     Dates: start: 20070101, end: 20080101
  5. ZANTAC 150 [Suspect]
     Indication: NAUSEA
     Dosage: 150 MG BID P.O.
     Route: 048
     Dates: start: 20070101, end: 20080101
  6. KLONIPAN [Concomitant]
  7. TYLENOL [Concomitant]
  8. REMERON [Concomitant]
  9. PROAIR HFA [Concomitant]

REACTIONS (4)
  - NAUSEA [None]
  - ABDOMINAL PAIN UPPER [None]
  - NO THERAPEUTIC RESPONSE [None]
  - DIARRHOEA [None]
